FAERS Safety Report 6370834-5 (Version None)
Quarter: 2009Q3

REPORT INFORMATION
  Report Type: 
  Country: None (occurrence: None)
  Receive Date: 20090923
  Receipt Date: 20070613
  Transmission Date: 20100115
  Serious: No
  Sender: FDA-Public Use
  Company Number: US-ASTRAZENECA-2006UW24002

PATIENT
  Age: 5577 Day
  Sex: Female
  Weight: 63 kg

DRUGS (6)
  1. SEROQUEL [Suspect]
     Indication: DEPRESSION
     Route: 048
     Dates: start: 19990101, end: 20060101
  2. SEROQUEL [Suspect]
     Route: 048
     Dates: start: 20000924, end: 20060417
  3. ZYPREXA [Concomitant]
     Dosage: 1.25 - 2.5 MG
     Route: 048
     Dates: start: 19981112
  4. REMERON [Concomitant]
     Route: 048
     Dates: start: 20010411
  5. DEPAKOTE [Concomitant]
     Dosage: 125-250 MG
     Route: 048
     Dates: start: 19981112
  6. RISPERDAL [Concomitant]
     Dates: start: 19960308

REACTIONS (4)
  - DIABETES MELLITUS [None]
  - DIABETES MELLITUS INADEQUATE CONTROL [None]
  - DRUG EXPOSURE DURING PREGNANCY [None]
  - TYPE 1 DIABETES MELLITUS [None]
